FAERS Safety Report 7231195-2 (Version None)
Quarter: 2011Q1

REPORT INFORMATION
  Report Type: 
  Country: None (occurrence: None)
  Receive Date: 20110118
  Receipt Date: 20110110
  Transmission Date: 20110831
  Serious: Yes (Other)
  Sender: FDA-Public Use
  Company Number: A0906323A

PATIENT
  Sex: Male

DRUGS (3)
  1. AVODART [Suspect]
     Indication: BENIGN PROSTATIC HYPERPLASIA
     Route: 048
     Dates: start: 20110107, end: 20110109
  2. TAMSULOSIN [Concomitant]
  3. FINASTERIDE [Concomitant]

REACTIONS (3)
  - ASTHENIA [None]
  - AGGRESSION [None]
  - FATIGUE [None]
